FAERS Safety Report 22100171 (Version 2)
Quarter: 2023Q1

REPORT INFORMATION
  Report Type: Spontaneous
  Country: US (occurrence: US)
  Receive Date: 20230315
  Receipt Date: 20230327
  Transmission Date: 20230417
  Serious: Yes (Hospitalization, Other)
  Sender: FDA-Public Use
  Company Number: US-LUNDBECK-DKLU3058949

PATIENT
  Age: 15 Year
  Sex: Male
  Weight: 43.5 kg

DRUGS (19)
  1. SABRIL [Suspect]
     Active Substance: VIGABATRIN
     Indication: Infantile spasms
     Route: 048
     Dates: start: 20180115
  2. SABRIL [Suspect]
     Active Substance: VIGABATRIN
     Route: 048
  3. MIRALAX [Concomitant]
     Active Substance: POLYETHYLENE GLYCOL 3350
     Indication: Constipation
     Route: 048
  4. ALBUTEROL [Concomitant]
     Active Substance: ALBUTEROL
     Indication: Product used for unknown indication
     Route: 055
  5. BUDESONIDE [Concomitant]
     Active Substance: BUDESONIDE
     Indication: Product used for unknown indication
     Route: 055
  6. CYPROHEPTADINE [Concomitant]
     Active Substance: CYPROHEPTADINE
     Indication: Product used for unknown indication
     Dosage: PLACE 10ML INTO PEG
     Route: 048
  7. GLYCOPYRROLATE [Concomitant]
     Active Substance: GLYCOPYRROLATE
     Indication: Product used for unknown indication
     Route: 048
  8. LANSOPRAZOLE [Concomitant]
     Active Substance: LANSOPRAZOLE
     Indication: Product used for unknown indication
     Dosage: PLACE 10ML INTO PEG
     Route: 048
  9. VALPROATE [Concomitant]
     Active Substance: VALPROIC ACID
     Indication: Seizure
     Route: 048
  10. VALPROATE [Concomitant]
     Active Substance: VALPROIC ACID
     Route: 048
  11. VALPROATE [Concomitant]
     Active Substance: VALPROIC ACID
     Route: 048
  12. VALPROATE [Concomitant]
     Active Substance: VALPROIC ACID
     Route: 048
  13. BETHKIS [Concomitant]
     Active Substance: TOBRAMYCIN
     Indication: Product used for unknown indication
     Route: 055
  14. DIAZEPAM [Concomitant]
     Active Substance: DIAZEPAM
     Indication: Seizure
     Route: 054
  15. DIAZEPAM [Concomitant]
     Active Substance: DIAZEPAM
     Dosage: 5 MINS IN DURATION, MAY REPEAT AFTER 4 HOURS IF NEEDED
     Route: 045
  16. VALTOCO [Concomitant]
     Active Substance: DIAZEPAM
     Indication: Seizure
     Route: 045
  17. KEPPRA [Concomitant]
     Active Substance: LEVETIRACETAM
     Indication: Seizure
     Route: 048
  18. GARAMYCIN OINTMENT [Concomitant]
     Indication: Product used for unknown indication
     Dosage: APPLY TO AFFECTED AREA BID FOR 7 DAYS
     Route: 061
  19. ATROVENT [Concomitant]
     Active Substance: IPRATROPIUM BROMIDE
     Indication: Product used for unknown indication
     Route: 055

REACTIONS (5)
  - Pneumonia [Recovered/Resolved]
  - Acute respiratory failure [Recovered/Resolved]
  - Partial seizures [Recovered/Resolved]
  - Seizure [Recovered/Resolved]
  - Tachycardia [Recovered/Resolved]

NARRATIVE: CASE EVENT DATE: 20230201
